FAERS Safety Report 19020857 (Version 1)
Quarter: 2021Q1

REPORT INFORMATION
  Report Type: Spontaneous
  Country: PL (occurrence: PL)
  Receive Date: 20210317
  Receipt Date: 20210317
  Transmission Date: 20210420
  Serious: Yes (Other)
  Sender: FDA-Public Use
  Company Number: PL-BAUSCH-BL-2021-009066

PATIENT
  Sex: Male

DRUGS (1)
  1. XIFAXAN [Suspect]
     Active Substance: RIFAXIMIN
     Indication: HEPATIC ENCEPHALOPATHY
     Route: 065

REACTIONS (4)
  - Symptom recurrence [Unknown]
  - Intentional product use issue [Recovered/Resolved]
  - Intentional underdose [Recovered/Resolved]
  - Hepatic encephalopathy [Unknown]
